FAERS Safety Report 10592406 (Version 1)
Quarter: 2014Q4

REPORT INFORMATION
  Report Type: Spontaneous
  Country: US (occurrence: None)
  Receive Date: 20141117
  Receipt Date: 20141117
  Transmission Date: 20150529
  Serious: Yes (Hospitalization)
  Sender: FDA-Public Use
  Company Number: 1224850-2014-00009

PATIENT
  Age: 85 Year
  Sex: Male

DRUGS (13)
  1. PD SOLUTIONS [Concomitant]
     Active Substance: CALCIUM CHLORIDE\DEXTROSE MONOHYDRATE\MAGNESIUM CHLORIDE\SODIUM CHLORIDE\SODIUM LACTATE
  2. TRAMADOL [Concomitant]
     Active Substance: TRAMADOL
  3. NITROGLYCERINE [Concomitant]
     Active Substance: NITROGLYCERIN
  4. LIBERTY DIALYSIS CYCLER [Concomitant]
  5. ATIVAN [Concomitant]
     Active Substance: LORAZEPAM
  6. MEGACE [Concomitant]
     Active Substance: MEGESTROL ACETATE
  7. ASPIRIN. [Concomitant]
     Active Substance: ASPIRIN
  8. LIBERTY DIALYSIS TUBING [Concomitant]
  9. PHOSLO [Suspect]
     Active Substance: CALCIUM ACETATE
     Dosage: 1 CAPSULE
     Route: 048
     Dates: start: 20141011
  10. AMIODARONE [Concomitant]
     Active Substance: AMIODARONE
  11. MIRALAX [Concomitant]
     Active Substance: POLYETHYLENE GLYCOL 3350
  12. MIDODRINE [Concomitant]
     Active Substance: MIDODRINE
  13. PROTONIX [Concomitant]
     Active Substance: PANTOPRAZOLE SODIUM
     Dosage: 1 CAPSULE, 3 TIMES, PO

REACTIONS (13)
  - Diastolic dysfunction [None]
  - Ischaemic cardiomyopathy [None]
  - Cough [None]
  - Orthopnoea [None]
  - Disorientation [None]
  - Cardiac failure congestive [None]
  - Fluid overload [None]
  - Dyspnoea exertional [None]
  - Confusional state [None]
  - Failure to thrive [None]
  - Weight increased [None]
  - Pericardial effusion [None]
  - Pleural effusion [None]

NARRATIVE: CASE EVENT DATE: 20141011
